FAERS Safety Report 18065119 (Version 1)
Quarter: 2020Q3

REPORT INFORMATION
  Report Type: Spontaneous
  Country: ES (occurrence: ES)
  Receive Date: 20200724
  Receipt Date: 20200724
  Transmission Date: 20201103
  Serious: Yes (Life-Threatening)
  Sender: FDA-Public Use
  Company Number: ES-TEVA-2020-ES-1804551

PATIENT
  Age: 93 Year
  Sex: Female

DRUGS (3)
  1. NEBIVOLOL (2741A) [Suspect]
     Active Substance: NEBIVOLOL
     Indication: CARDIAC FAILURE
     Dosage: 2.5 MG
     Route: 048
     Dates: start: 20131003, end: 20200618
  2. SIMVASTATINA 10 MG COMPRIMIDO [Concomitant]
  3. ACIDO ACETILSALICILICO 100 MG COMPRIMIDO [Concomitant]

REACTIONS (1)
  - Bradycardia [Recovered/Resolved]

NARRATIVE: CASE EVENT DATE: 20200611
